FAERS Safety Report 21808420 (Version 1)
Quarter: 2023Q1

REPORT INFORMATION
  Report Type: Spontaneous
  Country: US (occurrence: None)
  Receive Date: 20230103
  Receipt Date: 20230103
  Transmission Date: 20230418
  Serious: No
  Sender: FDA-Public Use
  Company Number: US-VistaPharm, Inc.-VER202211-000919

PATIENT
  Age: 75 Year
  Sex: Female
  Weight: 56.699 kg

DRUGS (5)
  1. SUCRALFATE ORAL SUSPENSION [Suspect]
     Active Substance: SUCRALFATE
     Indication: Reactive gastropathy
     Dosage: 10 ML
     Route: 048
     Dates: start: 202210
  2. METOPROLOL [Concomitant]
     Active Substance: METOPROLOL
     Indication: Extrasystoles
     Dosage: 12.5 MG (ONE TABLET IN MORNING AND ONE TABLET AT NIGHT)
     Route: 048
     Dates: start: 202105
  3. ROSUVASTATIN [Concomitant]
     Active Substance: ROSUVASTATIN
     Indication: Arterial occlusive disease
     Dosage: 40 MG
     Route: 065
     Dates: start: 202105
  4. NAC [Concomitant]
     Indication: Bronchiectasis
     Dosage: UNKNOWN (ONE TABLET IN THE MORNING AND ONE TABLET AT 8 O^CLOCK)
     Route: 048
     Dates: start: 2012
  5. NEXIUM [Concomitant]
     Active Substance: ESOMEPRAZOLE MAGNESIUM
     Indication: Product used for unknown indication
     Dosage: UNKNOWN
     Route: 065

REACTIONS (5)
  - Abdominal pain upper [Unknown]
  - Flatulence [Not Recovered/Not Resolved]
  - Insomnia [Not Recovered/Not Resolved]
  - Treatment noncompliance [Unknown]
  - Off label use [Unknown]

NARRATIVE: CASE EVENT DATE: 20221107
